FAERS Safety Report 5783186-6 (Version None)
Quarter: 2008Q2

REPORT INFORMATION
  Report Type: 
  Country: None (occurrence: None)
  Receive Date: 20080619
  Receipt Date: 20080619
  Transmission Date: 20081010
  Serious: Yes (Life-Threatening, Hospitalization)
  Sender: FDA-Public Use
  Company Number: None

PATIENT
  Sex: Female
  Weight: 65.7716 kg

DRUGS (10)
  1. REMICADE [Suspect]
     Indication: RHEUMATOID ARTHRITIS
     Dosage: 400 MG EVERY 6 WEEKS IV DRIP
     Route: 041
     Dates: start: 20050201, end: 20080521
  2. METHOTREXATE [Concomitant]
  3. NORVASC [Concomitant]
  4. LOVASTATIN [Concomitant]
  5. XANAX [Concomitant]
  6. ESTRADIOL [Concomitant]
  7. TYLENOL [Concomitant]
  8. SOMA [Concomitant]
  9. CELEBREX [Concomitant]
  10. FOLIC ACID [Concomitant]

REACTIONS (4)
  - NONSPECIFIC REACTION [None]
  - PNEUMONIA [None]
  - SEPSIS [None]
  - VIRAL INFECTION [None]
